FAERS Safety Report 16947020 (Version 1)
Quarter: 2019Q4

REPORT INFORMATION
  Report Type: Report from Study
  Country: GB (occurrence: GB)
  Receive Date: 20191022
  Receipt Date: 20191022
  Transmission Date: 20200122
  Serious: Yes (Death)
  Sender: FDA-Public Use
  Company Number: GB-MYLANLABS-2019M1099884

PATIENT
  Age: 55 Year
  Sex: Female

DRUGS (10)
  1. TRASTUZUMAB. [Suspect]
     Active Substance: TRASTUZUMAB
     Dosage: 588 MILLIGRAM, Q3W
     Route: 042
     Dates: start: 20181115, end: 20181227
  2. TRASTUZUMAB. [Suspect]
     Active Substance: TRASTUZUMAB
     Dosage: 441 MILLIGRAM, Q3W
     Route: 042
     Dates: start: 20181227, end: 20190606
  3. LEVOTHYROXINE. [Concomitant]
     Active Substance: LEVOTHYROXINE
     Dosage: 75 MICROGRAM, QD
     Route: 048
     Dates: start: 2003
  4. LETROZOLE. [Suspect]
     Active Substance: LETROZOLE
     Indication: BREAST CANCER METASTATIC
     Dosage: 2.5 MILLIGRAM, QD
     Route: 048
     Dates: start: 20190320
  5. DENOSUMAB [Concomitant]
     Active Substance: DENOSUMAB
     Dosage: 120 MILLIGRAM (EVERY 6 WEEKS)
     Route: 058
     Dates: start: 20130831, end: 20190606
  6. TRASTUZUMAB. [Suspect]
     Active Substance: TRASTUZUMAB
     Indication: BREAST CANCER METASTATIC
     Dosage: 250 MILLIGRAM, Q3W
     Route: 058
     Dates: start: 20170831, end: 20181025
  7. DEXAMETHASONE. [Concomitant]
     Active Substance: DEXAMETHASONE
     Dosage: 2 MILLIGRAM, QD
     Route: 048
     Dates: start: 20190320
  8. ACICLOVIR [Concomitant]
     Active Substance: ACYCLOVIR
     Dosage: 400 MILLIGRAM, QD
     Route: 048
  9. CAPECITABINE. [Suspect]
     Active Substance: CAPECITABINE
     Indication: BREAST CANCER METASTATIC
     Dosage: 4600 MILLIGRAM, QD
     Route: 048
     Dates: start: 20181115, end: 20190108
  10. CAPECITABINE. [Suspect]
     Active Substance: CAPECITABINE
     Dosage: 3600 MILLIGRAM, QD
     Route: 048
     Dates: start: 20190117, end: 20190301

REACTIONS (4)
  - Erythema [Unknown]
  - Varicella zoster virus infection [Recovering/Resolving]
  - Purpura [Recovering/Resolving]
  - Death [Fatal]

NARRATIVE: CASE EVENT DATE: 20190108
